FAERS Safety Report 14407141 (Version 1)
Quarter: 2018Q1

REPORT INFORMATION
  Report Type: Spontaneous
  Country: US (occurrence: US)
  Receive Date: 20180118
  Receipt Date: 20180118
  Transmission Date: 20180509
  Serious: Yes (Other)
  Sender: FDA-Public Use
  Company Number: US-ENDO PHARMACEUTICALS INC-2018-014328

PATIENT
  Sex: Female

DRUGS (2)
  1. HYDROCORTISONE TABLETS [Suspect]
     Active Substance: HYDROCORTISONE
     Indication: ADDISON^S DISEASE
     Dosage: UNK UNKNOWN, UNKNOWN
     Route: 065
     Dates: start: 201405
  2. SYNTHROID [Concomitant]
     Active Substance: LEVOTHYROXINE SODIUM
     Indication: HYPOTHYROIDISM
     Dosage: UNK UNKNOWN, UNKNOWN
     Route: 065

REACTIONS (13)
  - Ill-defined disorder [Unknown]
  - Feeling abnormal [Unknown]
  - Fatigue [Unknown]
  - Anxiety [Unknown]
  - Dysstasia [Unknown]
  - Loss of personal independence in daily activities [Unknown]
  - Blood pressure decreased [Unknown]
  - Nausea [Unknown]
  - Organ failure [Unknown]
  - Vomiting [Unknown]
  - Hypersomnia [Unknown]
  - Malaise [Unknown]
  - Headache [Unknown]
